FAERS Safety Report 20096079 (Version 4)
Quarter: 2025Q1

REPORT INFORMATION
  Report Type: Spontaneous
  Country: NL (occurrence: NL)
  Receive Date: 20211122
  Receipt Date: 20250304
  Transmission Date: 20250408
  Serious: Yes (Congenital Anomaly, Other)
  Sender: MYLAN
  Company Number: NL-009507513-2109NLD000642

PATIENT
  Age: 1 Day

DRUGS (32)
  1. TAMOXIFEN [Suspect]
     Active Substance: TAMOXIFEN
     Indication: Breast cancer
  2. TAMOXIFEN [Suspect]
     Active Substance: TAMOXIFEN
     Route: 064
  3. TAMOXIFEN [Suspect]
     Active Substance: TAMOXIFEN
     Route: 064
  4. TAMOXIFEN [Suspect]
     Active Substance: TAMOXIFEN
  5. TEMOZOLOMIDE [Suspect]
     Active Substance: TEMOZOLOMIDE
     Indication: Product used for unknown indication
  6. TEMOZOLOMIDE [Suspect]
     Active Substance: TEMOZOLOMIDE
     Route: 064
  7. TEMOZOLOMIDE [Suspect]
     Active Substance: TEMOZOLOMIDE
     Route: 064
  8. TEMOZOLOMIDE [Suspect]
     Active Substance: TEMOZOLOMIDE
  9. DOCETAXEL [Suspect]
     Active Substance: DOCETAXEL
     Indication: Breast cancer
  10. DOCETAXEL [Suspect]
     Active Substance: DOCETAXEL
     Route: 064
  11. DOCETAXEL [Suspect]
     Active Substance: DOCETAXEL
     Route: 064
  12. DOCETAXEL [Suspect]
     Active Substance: DOCETAXEL
  13. DOXORUBICIN HYDROCHLORIDE [Suspect]
     Active Substance: DOXORUBICIN HYDROCHLORIDE
     Indication: Breast cancer
  14. DOXORUBICIN HYDROCHLORIDE [Suspect]
     Active Substance: DOXORUBICIN HYDROCHLORIDE
     Route: 064
  15. DOXORUBICIN HYDROCHLORIDE [Suspect]
     Active Substance: DOXORUBICIN HYDROCHLORIDE
     Route: 064
  16. DOXORUBICIN HYDROCHLORIDE [Suspect]
     Active Substance: DOXORUBICIN HYDROCHLORIDE
  17. CYCLOPHOSPHAMIDE [Suspect]
     Active Substance: CYCLOPHOSPHAMIDE
     Indication: Breast cancer
  18. CYCLOPHOSPHAMIDE [Suspect]
     Active Substance: CYCLOPHOSPHAMIDE
     Route: 064
  19. CYCLOPHOSPHAMIDE [Suspect]
     Active Substance: CYCLOPHOSPHAMIDE
     Route: 064
  20. CYCLOPHOSPHAMIDE [Suspect]
     Active Substance: CYCLOPHOSPHAMIDE
  21. DOXORUBICIN [Suspect]
     Active Substance: DOXORUBICIN
     Indication: Breast cancer
  22. DOXORUBICIN [Suspect]
     Active Substance: DOXORUBICIN
     Route: 064
  23. DOXORUBICIN [Suspect]
     Active Substance: DOXORUBICIN
     Route: 064
  24. DOXORUBICIN [Suspect]
     Active Substance: DOXORUBICIN
  25. CYCLOPHOSPHAMIDE [Suspect]
     Active Substance: CYCLOPHOSPHAMIDE
     Indication: Breast cancer
  26. CYCLOPHOSPHAMIDE [Suspect]
     Active Substance: CYCLOPHOSPHAMIDE
     Route: 064
  27. CYCLOPHOSPHAMIDE [Suspect]
     Active Substance: CYCLOPHOSPHAMIDE
     Route: 064
  28. CYCLOPHOSPHAMIDE [Suspect]
     Active Substance: CYCLOPHOSPHAMIDE
  29. GRANULOCYTE COLONY-STIMULATING FACTOR NOS [Suspect]
     Active Substance: GRANULOCYTE COLONY-STIMULATING FACTOR NOS
     Indication: Breast cancer
  30. GRANULOCYTE COLONY-STIMULATING FACTOR NOS [Suspect]
     Active Substance: GRANULOCYTE COLONY-STIMULATING FACTOR NOS
     Route: 064
  31. GRANULOCYTE COLONY-STIMULATING FACTOR NOS [Suspect]
     Active Substance: GRANULOCYTE COLONY-STIMULATING FACTOR NOS
     Route: 064
  32. GRANULOCYTE COLONY-STIMULATING FACTOR NOS [Suspect]
     Active Substance: GRANULOCYTE COLONY-STIMULATING FACTOR NOS

REACTIONS (4)
  - Microcephaly [Unknown]
  - Ventricular septal defect [Unknown]
  - Renal aplasia [Unknown]
  - Foetal exposure during pregnancy [Recovered/Resolved]
